FAERS Safety Report 6889825-0 (Version None)
Quarter: 2010Q3

REPORT INFORMATION
  Report Type: 
  Country: None (occurrence: None)
  Receive Date: 20100730
  Receipt Date: 20080515
  Transmission Date: 20110219
  Serious: No
  Sender: FDA-Public Use
  Company Number: US-PFIZER INC-2008024620

PATIENT
  Sex: Female
  Weight: 60.78 kg

DRUGS (3)
  1. LIPITOR [Suspect]
     Indication: HYPERLIPIDAEMIA
     Dates: start: 20080201
  2. GENERAL NUTRIENTS/HERBAL NOS/MINERALS NOS [Concomitant]
  3. PRENATAL VITAMINS [Concomitant]

REACTIONS (5)
  - ALCOHOL INTOLERANCE [None]
  - COLD SWEAT [None]
  - DIZZINESS [None]
  - DYSPEPSIA [None]
  - NAUSEA [None]
